FAERS Safety Report 5023798-0 (Version None)
Quarter: 2006Q2

REPORT INFORMATION
  Report Type: 
  Country: None (occurrence: None)
  Receive Date: 20060612
  Receipt Date: 20060515
  Transmission Date: 20061013
  Serious: Yes (Other)
  Sender: FDA-Public Use
  Company Number: US-AMGEN-US179578

PATIENT
  Sex: Male
  Weight: 25 kg

DRUGS (5)
  1. ARANESP [Suspect]
     Indication: RENAL FAILURE CHRONIC
     Route: 014
     Dates: start: 20050217
  2. EPOGEN [Suspect]
     Indication: DIALYSIS
     Route: 042
     Dates: start: 20040718, end: 20050217
  3. NEXIUM [Concomitant]
  4. CLONIDINE [Concomitant]
  5. AZACITIDINE [Concomitant]
     Dates: start: 20050830, end: 20060521

REACTIONS (8)
  - BLOOD PRODUCT TRANSFUSION DEPENDENT [None]
  - HERPES ZOSTER [None]
  - LUNG DISORDER [None]
  - MYELODYSPLASTIC SYNDROME [None]
  - PANCYTOPENIA [None]
  - RESPIRATORY FAILURE [None]
  - SERUM FERRITIN INCREASED [None]
  - THERAPEUTIC RESPONSE DECREASED [None]
